FAERS Safety Report 22252255 (Version 1)
Quarter: 2023Q2

REPORT INFORMATION
  Report Type: Report from Study
  Country: AE (occurrence: AE)
  Receive Date: 20230426
  Receipt Date: 20230426
  Transmission Date: 20230721
  Serious: Yes (Disabling)
  Sender: FDA-Public Use
  Company Number: AE-002147023-NVSC2023AE062930

PATIENT
  Age: 19 Year
  Sex: Female

DRUGS (1)
  1. KESIMPTA [Suspect]
     Active Substance: OFATUMUMAB
     Indication: Multiple sclerosis
     Dosage: 20 MG, QMO
     Route: 058
     Dates: start: 20230216

REACTIONS (6)
  - Incontinence [Recovering/Resolving]
  - Dizziness [Recovering/Resolving]
  - Movement disorder [Recovering/Resolving]
  - Limb discomfort [Unknown]
  - Hypoaesthesia [Recovering/Resolving]
  - Headache [Recovering/Resolving]

NARRATIVE: CASE EVENT DATE: 20230216
